FAERS Safety Report 5767687-2 (Version None)
Quarter: 2008Q2

REPORT INFORMATION
  Report Type: 
  Country: None (occurrence: None)
  Receive Date: 20080609
  Receipt Date: 20080527
  Transmission Date: 20081010
  Serious: Yes (Death, Hospitalization)
  Sender: FDA-Public Use
  Company Number: 2008AL005972

PATIENT
  Age: 101 Year
  Sex: Male
  Weight: 79.3795 kg

DRUGS (3)
  1. DIGOXIN [Suspect]
  2. COUMADIN [Concomitant]
  3. POTASSIUM CHLORIDE [Concomitant]

REACTIONS (1)
  - MALAISE [None]
